FAERS Safety Report 6074633-3 (Version None)
Quarter: 2009Q1

REPORT INFORMATION
  Report Type: 
  Country: None (occurrence: None)
  Receive Date: 20090209
  Receipt Date: 20090209
  Transmission Date: 20090719
  Serious: No
  Sender: FDA-Public Use
  Company Number: None

PATIENT
  Age: 26 Year
  Sex: Female
  Weight: 86.637 kg

DRUGS (2)
  1. CYMBALTA [Suspect]
     Indication: ANXIETY
     Dosage: QD PO
     Route: 048
     Dates: start: 20070215, end: 20090126
  2. CYMBALTA [Suspect]
     Indication: DEPRESSION
     Dosage: QD PO
     Route: 048
     Dates: start: 20070215, end: 20090126

REACTIONS (6)
  - ANXIETY [None]
  - DIZZINESS [None]
  - FATIGUE [None]
  - NAUSEA [None]
  - PARAESTHESIA [None]
  - WITHDRAWAL SYNDROME [None]
